FAERS Safety Report 7560301-5 (Version None)
Quarter: 2011Q2

REPORT INFORMATION
  Report Type: 
  Country: None (occurrence: None)
  Receive Date: 20110621
  Receipt Date: 20110613
  Transmission Date: 20111010
  Serious: Yes (Hospitalization, Other)
  Sender: FDA-Public Use
  Company Number: GB-US-EMD SERONO, INC.-7053853

PATIENT
  Sex: Female
  Weight: 28 kg

DRUGS (3)
  1. SAIZEN [Suspect]
     Indication: GROWTH HORMONE DEFICIENCY
     Dates: start: 20110401, end: 20110413
  2. SAIZEN [Suspect]
     Dates: start: 20110425
  3. PREDNISOLONE [Concomitant]
     Indication: GRAFT VERSUS HOST DISEASE

REACTIONS (3)
  - DEVICE RELATED INFECTION [None]
  - PAIN IN EXTREMITY [None]
  - GRAFT VERSUS HOST DISEASE [None]
